FAERS Safety Report 17354350 (Version 1)
Quarter: 2020Q1

REPORT INFORMATION
  Report Type: Spontaneous
  Country: IN (occurrence: IN)
  Receive Date: 20200131
  Receipt Date: 20200131
  Transmission Date: 20200409
  Serious: Yes (Hospitalization, Disabling, Other)
  Sender: FDA-Public Use
  Company Number: IN-QUAGEN PHARMA LLC-2020QUALIT00003

PATIENT
  Sex: Female

DRUGS (3)
  1. ATROPINE. [Suspect]
     Active Substance: ATROPINE
  2. PENTAZOCINE [Suspect]
     Active Substance: PENTAZOCINE
  3. PROMETHAZINE HYDROCHLORIDE TABLETS, 25 MG [Suspect]
     Active Substance: PROMETHAZINE HYDROCHLORIDE

REACTIONS (3)
  - Gangrene [Unknown]
  - Incorrect route of product administration [None]
  - Extremity contracture [Unknown]
